FAERS Safety Report 23687629 (Version 1)
Quarter: 2024Q1

REPORT INFORMATION
  Report Type: Spontaneous
  Country: US (occurrence: None)
  Receive Date: 20240328
  Receipt Date: 20240328
  Transmission Date: 20240409
  Serious: Yes (Hospitalization)
  Sender: FDA-Public Use
  Company Number: None

PATIENT
  Age: 49 Year
  Sex: Female
  Weight: 72.9 kg

DRUGS (14)
  1. RIZATRIPTAN [Suspect]
     Active Substance: RIZATRIPTAN
     Indication: Migraine
     Dosage: OTHER QUANTITY : 1 TABLET(S);?FREQUENCY : AS NEEDED;?
     Route: 048
     Dates: end: 20240314
  2. Nurtec [Concomitant]
  3. GABAPENTIN [Concomitant]
  4. NORTRIPTYLINE [Concomitant]
  5. CYCLOBENZAPRINE [Concomitant]
  6. Qulipta [Concomitant]
  7. COENZYME Q10 [Concomitant]
     Active Substance: DIETARY SUPPLEMENT\UBIDECARENONE
  8. MAGNESIUM [Concomitant]
  9. B2 [Concomitant]
  10. mult vitamin [Concomitant]
  11. VITAMIN B COMPLEX [Concomitant]
     Active Substance: CYANOCOBALAMIN\DEXPANTHENOL\NIACINAMIDE\PYRIDOXINE HYDROCHLORIDE\RIBOFLAVIN 5^-PHOSPHATE SODIUM\THIA
  12. VITAMIN D [Concomitant]
     Active Substance: VITAMIN D NOS
  13. VITAMIN C [Concomitant]
     Active Substance: ASCORBIC ACID
  14. flaxseed oil [Concomitant]

REACTIONS (2)
  - Myocardial infarction [None]
  - Troponin increased [None]

NARRATIVE: CASE EVENT DATE: 20240314
